FAERS Safety Report 5295442-9 (Version None)
Quarter: 2007Q2

REPORT INFORMATION
  Report Type: 
  Country: None (occurrence: None)
  Receive Date: 20070412
  Receipt Date: 20070407
  Transmission Date: 20071010
  Serious: Yes (Disabling)
  Sender: FDA-Public Use
  Company Number: JO-MERCK-0704USA01294

PATIENT
  Age: 9 Month
  Sex: Male
  Weight: 7 kg

DRUGS (1)
  1. SINGULAIR [Suspect]
     Indication: BRONCHIOLITIS
     Route: 048

REACTIONS (1)
  - HEPATIC ENZYME INCREASED [None]
